FAERS Safety Report 5345408-5 (Version None)
Quarter: 2007Q2

REPORT INFORMATION
  Report Type: 
  Country: None (occurrence: None)
  Receive Date: 20070605
  Receipt Date: 20070523
  Transmission Date: 20071010
  Serious: Yes (Hospitalization, Other)
  Sender: FDA-Public Use
  Company Number: US-ELI_LILLY_AND_COMPANY-US200705005798

PATIENT
  Age: 80 Year
  Sex: Female
  Weight: 54.875 kg

DRUGS (14)
  1. FORTEO [Suspect]
     Indication: OSTEOPOROSIS
     Dosage: 20 UG, DAILY (1/D)
     Route: 058
     Dates: start: 20031015
  2. ASPIRIN [Concomitant]
     Dosage: 81 MG, 3/W
  3. CALCIUM CARBONATE [Concomitant]
     Dosage: UNK, 2/D
  4. CELEBREX [Concomitant]
     Dosage: 200 MG, 2/D
  5. FOLIC ACID [Concomitant]
     Dosage: 2 MG, DAILY (1/D)
  6. DILTIAZEM CD [Concomitant]
     Dosage: 180 MG, DAILY (1/D)
  7. HYDROXYCHLOROQUINE SULFATE [Concomitant]
     Dosage: 400 MG, DAILY (1/D)
  8. VITAMIN D [Concomitant]
  9. EVISTA [Suspect]
     Indication: OSTEOPOROSIS
     Dosage: UNK, UNK
  10. PREDNISONE TAB [Concomitant]
     Dosage: 5 MG, DAILY (1/D)
     Route: 048
  11. METHOTREXATE [Concomitant]
     Dosage: 10 MG, WEEKLY (1/W)
     Route: 048
  12. MULTI-VITAMIN [Concomitant]
     Dosage: UNK, DAILY (1/D)
  13. OMEPRAZOLE [Concomitant]
     Dosage: 20 MG, DAILY (1/D)
  14. ISORDIL [Concomitant]
     Dosage: 100 MG, EACH MORNING
     Route: 048

REACTIONS (5)
  - ABSCESS [None]
  - FALL [None]
  - OSTEOMYELITIS [None]
  - SEPSIS [None]
  - SPINAL FRACTURE [None]
